FAERS Safety Report 8326088-3 (Version None)
Quarter: 2012Q2

REPORT INFORMATION
  Report Type: 
  Country: None (occurrence: None)
  Receive Date: 20120501
  Receipt Date: 20120425
  Transmission Date: 20120825
  Serious: Yes (Other)
  Sender: FDA-Public Use
  Company Number: JP-GLAXOSMITHKLINE-B0798673A

PATIENT
  Sex: Male

DRUGS (4)
  1. CEFDINIR [Concomitant]
     Indication: SKIN BACTERIAL INFECTION
     Dosage: 100MG PER DAY
     Route: 048
     Dates: start: 20120420
  2. LOXONIN [Concomitant]
     Indication: ANALGESIC THERAPY
     Dosage: 120MG PER DAY
     Route: 048
     Dates: start: 20120420
  3. VALTREX [Suspect]
     Indication: HERPES ZOSTER
     Dosage: 1000MG PER DAY
     Route: 048
     Dates: start: 20120420, end: 20120420
  4. ALLOPURINOL [Concomitant]
     Indication: HYPERURICAEMIA
     Dosage: 200MG PER DAY
     Route: 048

REACTIONS (8)
  - AGGRESSION [None]
  - ALTERED STATE OF CONSCIOUSNESS [None]
  - HALLUCINATION [None]
  - HALLUCINATION, VISUAL [None]
  - RESTLESSNESS [None]
  - INAPPROPRIATE AFFECT [None]
  - CSF PROTEIN INCREASED [None]
  - DYSARTHRIA [None]
